FAERS Safety Report 4626809-7 (Version None)
Quarter: 2005Q1

REPORT INFORMATION
  Report Type: 
  Country: None (occurrence: None)
  Receive Date: 20050330
  Receipt Date: 20050316
  Transmission Date: 20050727
  Serious: Yes (Disabling)
  Sender: FDA-Public Use
  Company Number: 10646

PATIENT
  Age: 55 Year
  Sex: Female

DRUGS (1)
  1. METHOTREXATE [Suspect]
     Indication: METASTASES TO MENINGES
     Dosage: IT
     Route: 037
     Dates: start: 20041101, end: 20050101

REACTIONS (2)
  - CONDITION AGGRAVATED [None]
  - VISUAL DISTURBANCE [None]
